FAERS Safety Report 13433380 (Version 4)
Quarter: 2020Q4

REPORT INFORMATION
  Report Type: Spontaneous
  Country: GB (occurrence: GB)
  Receive Date: 20170412
  Receipt Date: 20201001
  Transmission Date: 20210113
  Serious: Yes (Life-Threatening, Hospitalization, Other)
  Sender: FDA-Public Use
  Company Number: GB-AUROBINDO-AUR-APL-2017-32396

PATIENT
  Age: 23 Year
  Sex: Male

DRUGS (6)
  1. HYDROCHLOROTHIAZIDE;TELMISARTAN [Suspect]
     Active Substance: HYDROCHLOROTHIAZIDE\TELMISARTAN
     Indication: PRODUCT USED FOR UNKNOWN INDICATION
     Dosage: UNK
     Route: 065
  2. LEVOTHYROXINE. [Suspect]
     Active Substance: LEVOTHYROXINE
     Indication: PRODUCT USED FOR UNKNOWN INDICATION
     Dosage: UNK (UNCLEAR AMOUNT)
     Route: 065
  3. LEVOTHYROXINE. [Suspect]
     Active Substance: LEVOTHYROXINE
     Dosage: 225 MICROGRAM, ONCE A DAY
     Route: 065
  4. METFORMIN [Suspect]
     Active Substance: METFORMIN HYDROCHLORIDE
     Dosage: 500 MILLIGRAM, ONCE A DAY
     Route: 065
  5. METFORMIN [Suspect]
     Active Substance: METFORMIN HYDROCHLORIDE
     Indication: TYPE 2 DIABETES MELLITUS
     Dosage: UNK, 50-60 G (1 TOTAL)
     Route: 048
  6. AMLODIPINE [Concomitant]
     Active Substance: AMLODIPINE BESYLATE
     Indication: PRODUCT USED FOR UNKNOWN INDICATION
     Dosage: 2.5 MILLIGRAM, ONCE A DAY
     Route: 065

REACTIONS (13)
  - Lactic acidosis [Recovered/Resolved]
  - Electrocardiogram QT prolonged [Recovered/Resolved]
  - Vomiting [Recovered/Resolved]
  - Abdominal pain [Recovered/Resolved]
  - Multiple organ dysfunction syndrome [Recovered/Resolved]
  - Condition aggravated [Recovered/Resolved]
  - Coagulopathy [Recovered/Resolved]
  - Intentional overdose [Recovered/Resolved]
  - Agitation [Recovered/Resolved]
  - Hepatic function abnormal [Recovered/Resolved]
  - Acute kidney injury [Recovered/Resolved]
  - Haemodynamic instability [Recovered/Resolved]
  - Overdose [Recovered/Resolved]
